FAERS Safety Report 17527218 (Version 4)
Quarter: 2020Q2

REPORT INFORMATION
  Report Type: Spontaneous
  Country: US (occurrence: US)
  Receive Date: 20200311
  Receipt Date: 20200601
  Transmission Date: 20200713
  Serious: Yes (Hospitalization, Other)
  Sender: FDA-Public Use
  Company Number: US-PFIZER INC-2018528713

PATIENT
  Age: 81 Year
  Sex: Female
  Weight: 86 kg

DRUGS (27)
  1. PROVENTIL [Concomitant]
     Active Substance: ALBUTEROL
     Dosage: 2.5 MG, ALTERNATE DAY (EVERY 6 HOURS AS NEEDED)
  2. COLACE [Concomitant]
     Active Substance: DOCUSATE SODIUM
     Dosage: 100 MG, AS NEEDED (TWO TIMES A DAY AS NEEDED)
     Route: 048
  3. XARELTO [Concomitant]
     Active Substance: RIVAROXABAN
     Dosage: 15 MG, 2X/DAY (WITH MEALS FOR 41 DOSES)
     Route: 048
     Dates: start: 20200204, end: 20200225
  4. LYRICA [Suspect]
     Active Substance: PREGABALIN
     Dosage: 300 MG, 2X/DAY
     Route: 048
     Dates: start: 20200204, end: 20200225
  5. LYRICA [Suspect]
     Active Substance: PREGABALIN
     Dosage: 150 MG, 1X/DAY
     Route: 048
  6. DEMADEX [Concomitant]
     Active Substance: TORSEMIDE
     Dosage: 10 MG, ALTERNATE DAY (TAKE 1 TABLET EVERY MONDAY, WEDNESDAY, FRIDAY)
     Route: 048
     Dates: start: 20191204
  7. NORCO [Concomitant]
     Active Substance: ACETAMINOPHEN\HYDROCODONE BITARTRATE
     Indication: PAIN
     Dosage: 1 DF, 2X/DAY (5-325 MG PER TABLET)
     Route: 048
     Dates: start: 20191030
  8. TYLENOL [Concomitant]
     Active Substance: ACETAMINOPHEN
     Dosage: 650 MG, AS NEEDED (EVERY 6 HOURS AS NEEDED)
     Route: 048
  9. XARELTO [Concomitant]
     Active Substance: RIVAROXABAN
     Dosage: 20 MG, DAILY (WITH DINNER)
     Route: 048
     Dates: start: 20200130, end: 20200220
  10. XARELTO [Concomitant]
     Active Substance: RIVAROXABAN
     Dosage: 15 MG, 2X/DAY (WITH MEALS)
     Route: 048
     Dates: start: 20200220
  11. LYRICA [Suspect]
     Active Substance: PREGABALIN
     Dosage: 600 MG, DAILY (1 IN MORNING, 1 IN AFTERNOON, 2 AT BEDTIME)
     Route: 048
     Dates: start: 20181214, end: 20190314
  12. CYMBALTA [Concomitant]
     Active Substance: DULOXETINE HYDROCHLORIDE
     Dosage: 60 MG, 1X/DAY
     Route: 048
     Dates: start: 20191203
  13. DESYREL [Concomitant]
     Active Substance: TRAZODONE HYDROCHLORIDE
     Dosage: 25 MG, AS NEEDED (AT NIGHT AS NEEDED)
  14. POLYETHYLENE GLYCOL 3350. [Concomitant]
     Active Substance: POLYETHYLENE GLYCOL 3350
     Dosage: 17 G, 1X/DAY (USE AS DIRECTED)
     Route: 048
     Dates: start: 20180613
  15. LYRICA [Suspect]
     Active Substance: PREGABALIN
     Dosage: 600 MG, DAILY (1 CAPSULE IN AM, 1 CAPSULE IN PM, 2 CAPSULE AT BEDTIME; TOTAL 4 CAPSULES DAILY)
  16. KLOR-CON [Concomitant]
     Active Substance: POTASSIUM CHLORIDE
     Dosage: 1 DF, ALTERNATE DAY (TAKE 1 TABLET EVERY MONDAY, WEDNESDAY, FRIDAY)
     Route: 048
     Dates: start: 20191204
  17. XARELTO [Concomitant]
     Active Substance: RIVAROXABAN
     Dosage: 20 MG, DAILY (WITH DINNER)
     Route: 048
     Dates: start: 20200220
  18. PRILOSEC [Concomitant]
     Active Substance: OMEPRAZOLE MAGNESIUM
     Dosage: 20 MG, CYCLIC (TAKE 1 CAPSULE ONCE DAILY FOR 14 DAYS)
     Route: 048
  19. DEFINITY [Concomitant]
     Active Substance: PERFLUTREN
     Dosage: 1.3 ML, AS NEEDED
     Route: 042
  20. MOM [Concomitant]
     Active Substance: MAGNESIUM HYDROXIDE
     Dosage: 30 MG, AS NEEDED (400MG/5ML DAILY AS NEEDED)
     Route: 048
  21. XARELTO [Concomitant]
     Active Substance: RIVAROXABAN
     Dosage: 15 MG, 2X/DAY (WITH MEALS)
     Route: 048
     Dates: start: 20200130, end: 20200220
  22. SHINGRIX [Concomitant]
     Active Substance: RECOMBINANT VARICELLA ZOSTER VIRUS (VZV) GLYCOPROTEIN E
     Dosage: 0.5 ML (INJECT 0.5 ML INTRAMUSCULARLY NOW AND REPEAT 2ND DOSE IN 2-6 MONTHS)
     Route: 030
  23. LYRICA [Suspect]
     Active Substance: PREGABALIN
     Indication: POLYNEUROPATHY
     Dosage: 150 MG, 1X/DAY
     Route: 048
     Dates: start: 200904, end: 200904
  24. LYRICA [Suspect]
     Active Substance: PREGABALIN
     Indication: NEUROPATHY PERIPHERAL
     Dosage: 150 MG, 3X/DAY (TAKE ONE IN MORNING AND TWO AT BEDTIME)
     Route: 048
  25. TESSALON [Concomitant]
     Active Substance: BENZONATATE
     Dosage: 600 MG, AS NEEDED (TAKE 2 CAPSULES THREE TIMES DAILY AS NEEDED)
     Route: 048
  26. LIPITOR [Concomitant]
     Active Substance: ATORVASTATIN CALCIUM
     Dosage: 40 MG, 1X/DAY
     Route: 048
     Dates: start: 20191203
  27. DESYREL [Concomitant]
     Active Substance: TRAZODONE HYDROCHLORIDE
     Dosage: 50 MG, 1X/DAY (TAKE 1 TABLET BY MOUTH DAILY AT BEDTIME)
     Route: 048

REACTIONS (25)
  - Pulmonary embolism [Recovered/Resolved]
  - Pain [Unknown]
  - Dehydration [Unknown]
  - Osteopenia [Unknown]
  - Dyspnoea [Unknown]
  - Spinal cord compression [Unknown]
  - Lichen sclerosus [Unknown]
  - Thrombosis [Unknown]
  - Oral administration complication [Unknown]
  - Oedema [Unknown]
  - Sinus tachycardia [Unknown]
  - Vulval cancer [Unknown]
  - Ataxia [Unknown]
  - Aortic aneurysm [Unknown]
  - Asthenia [Unknown]
  - Heart rate increased [Unknown]
  - Oxygen saturation decreased [Unknown]
  - Hypotension [Unknown]
  - Nausea [Unknown]
  - Hiatus hernia [Unknown]
  - Peripheral swelling [Unknown]
  - Glucose tolerance impaired [Unknown]
  - Platelet count decreased [Unknown]
  - Fatigue [Unknown]
  - Back pain [Unknown]

NARRATIVE: CASE EVENT DATE: 200905
